FAERS Safety Report 11112764 (Version 1)
Quarter: 2015Q2

REPORT INFORMATION
  Report Type: Spontaneous
  Country: US (occurrence: US)
  Receive Date: 20150514
  Receipt Date: 20150514
  Transmission Date: 20150821
  Serious: Yes (Death)
  Sender: FDA-Public Use
  Company Number: US-BAYER-2015-223781

PATIENT
  Age: 50 Year
  Sex: Male

DRUGS (9)
  1. LETAIRIS [Concomitant]
     Active Substance: AMBRISENTAN
  2. ALBUTEROL. [Concomitant]
     Active Substance: ALBUTEROL
  3. ADCIRCA [Concomitant]
     Active Substance: TADALAFIL
  4. ADVAIR HFA [Concomitant]
     Active Substance: FLUTICASONE PROPIONATE\SALMETEROL XINAFOATE
  5. XARELTO [Suspect]
     Active Substance: RIVAROXABAN
  6. IRON [Concomitant]
     Active Substance: IRON
  7. LASIX [Concomitant]
     Active Substance: FUROSEMIDE
  8. VENTAVIS [Suspect]
     Active Substance: ILOPROST
     Indication: PULMONARY ARTERIAL HYPERTENSION
     Dosage: UNK
     Dates: start: 20140718
  9. ACETYLSALICYLIC ACID(}100 MG) [Suspect]
     Active Substance: ASPIRIN

REACTIONS (1)
  - Death [Fatal]

NARRATIVE: CASE EVENT DATE: 20150424
